FAERS Safety Report 4706102-4 (Version None)
Quarter: 2005Q2

REPORT INFORMATION
  Report Type: 
  Country: None (occurrence: None)
  Receive Date: 20050629
  Receipt Date: 20050621
  Transmission Date: 20051028
  Serious: Yes (Hospitalization, Other)
  Sender: FDA-Public Use
  Company Number: 2005091023

PATIENT
  Sex: Male
  Weight: 90.7194 kg

DRUGS (5)
  1. LIPITOR [Suspect]
     Indication: BLOOD CHOLESTEROL ABNORMAL
     Dosage: 10 MG (10 MG, 1 IN 1 D), ORAL
     Route: 048
     Dates: start: 20010101
  2. CRESTOR [Suspect]
     Indication: ILL-DEFINED DISORDER
     Dates: start: 20050101, end: 20050101
  3. MAGNESIUM (MAGNESIUM) [Suspect]
     Indication: ILL-DEFINED DISORDER
     Dosage: 1000 MG (1 D)
  4. VALSARTAN (VALARTAN) [Concomitant]
  5. ATENOLOL [Concomitant]

REACTIONS (9)
  - ARTHRITIS [None]
  - BACK PAIN [None]
  - BALANCE DISORDER [None]
  - CHEST PAIN [None]
  - CONDITION AGGRAVATED [None]
  - DIZZINESS [None]
  - DYSPNOEA [None]
  - HEADACHE [None]
  - PROSTATE CANCER [None]
